FAERS Safety Report 9604790 (Version 3)
Quarter: 2013Q4

REPORT INFORMATION
  Report Type: Spontaneous
  Country: IT (occurrence: IT)
  Receive Date: 20131008
  Receipt Date: 20131203
  Transmission Date: 20140711
  Serious: Yes (Other)
  Sender: FDA-Public Use
  Company Number: IT-UCBSA-099611

PATIENT
  Age: 37 Year
  Sex: Male
  Weight: 70 kg

DRUGS (5)
  1. KEPPRA [Suspect]
     Dosage: UNSPECIFIED DOSE
  2. HALDOL [Suspect]
     Indication: NEUROPSYCHIATRIC SYNDROME
     Dosage: 2MG/ML, 30ML BOTTLE-UNSPECIFIED DOSE
  3. TAVOR [Suspect]
     Dosage: UNSPECIFIED DOSE
  4. ANTABUSE DISPERGETTES [Suspect]
     Dosage: 400MG, 24 EFFERVESCENT TABLETS
  5. ALCOVER [Suspect]

REACTIONS (2)
  - Slow response to stimuli [Unknown]
  - Drug abuse [Unknown]
